FAERS Safety Report 8623555-X (Version None)
Quarter: 2012Q3

REPORT INFORMATION
  Report Type: 
  Country: None (occurrence: None)
  Receive Date: 20120827
  Receipt Date: 20120604
  Transmission Date: 20120928
  Serious: No
  Sender: FDA-Public Use
  Company Number: US-MYLANLABS-2012S1011369

PATIENT
  Sex: Female

DRUGS (4)
  1. SINGULAIR [Concomitant]
     Indication: ASTHMA
     Route: 048
  2. LANSOPRAZOLE [Suspect]
     Indication: GASTROOESOPHAGEAL REFLUX DISEASE
     Route: 048
  3. SYNTHROID [Concomitant]
     Indication: HYPOTHYROIDISM
     Route: 048
  4. FLOVENT [Concomitant]
     Indication: ASTHMA
     Route: 055

REACTIONS (1)
  - ABDOMINAL PAIN [None]
